FAERS Safety Report 12173254 (Version 2)
Quarter: 2016Q2

REPORT INFORMATION
  Report Type: Report from Study
  Country: IE (occurrence: IE)
  Receive Date: 20160311
  Receipt Date: 20160422
  Transmission Date: 20160815
  Serious: Yes (Hospitalization)
  Sender: FDA-Public Use
  Company Number: IE-BIOGEN-2015BI127785

PATIENT
  Age: 18 Month
  Sex: Male
  Weight: 12.2 kg

DRUGS (1)
  1. ALPROLIX [Suspect]
     Active Substance: EFTRENONACOG ALFA
     Indication: FACTOR IX DEFICIENCY
     Route: 042
     Dates: start: 20141113

REACTIONS (1)
  - Viral rash [Recovered/Resolved]

NARRATIVE: CASE EVENT DATE: 20150916
